FAERS Safety Report 6030402-1 (Version None)
Quarter: 2009Q1

REPORT INFORMATION
  Report Type: 
  Country: None (occurrence: None)
  Receive Date: 20090107
  Receipt Date: 20081226
  Transmission Date: 20090719
  Serious: Yes (Other)
  Sender: FDA-Public Use
  Company Number: JP-PFIZER INC-2008101568

PATIENT

DRUGS (1)
  1. ZOLOFT [Suspect]
     Route: 048
     Dates: start: 20081212

REACTIONS (1)
  - POLLAKIURIA [None]
